FAERS Safety Report 25855833 (Version 2)
Quarter: 2025Q4

REPORT INFORMATION
  Report Type: Spontaneous
  Country: US (occurrence: US)
  Receive Date: 20250928
  Receipt Date: 20251015
  Transmission Date: 20260117
  Serious: No
  Sender: SANOFI AVENTIS
  Company Number: US-SA-2025SA286381

PATIENT
  Age: 65 Year
  Sex: Male
  Weight: 91.63 kg

DRUGS (5)
  1. CAPRELSA [Suspect]
     Active Substance: VANDETANIB
     Indication: Dermatitis
     Dosage: 200 MG, QD
     Route: 048
     Dates: start: 20200323
  2. CAPRELSA [Suspect]
     Active Substance: VANDETANIB
     Indication: Thyroid cancer
  3. CAPRELSA [Suspect]
     Active Substance: VANDETANIB
     Indication: Metastases to liver
  4. LISINOPRIL [Concomitant]
     Active Substance: LISINOPRIL
     Indication: Hypertension
     Dosage: UNK
  5. AMLODIPINE [Concomitant]
     Active Substance: AMLODIPINE BESYLATE
     Indication: Hypertension
     Dosage: UNK

REACTIONS (2)
  - Urinary tract infection [Unknown]
  - Blood pressure abnormal [Unknown]
